FAERS Safety Report 16978701 (Version 1)
Quarter: 2019Q4

REPORT INFORMATION
  Report Type: Spontaneous
  Country: DE (occurrence: DE)
  Receive Date: 20191031
  Receipt Date: 20191031
  Transmission Date: 20200122
  Serious: Yes (Death, Other)
  Sender: FDA-Public Use
  Company Number: DE-PFIZER INC-2019468695

PATIENT
  Age: 81 Year
  Sex: Male
  Weight: 65 kg

DRUGS (11)
  1. ZOFRAN [Concomitant]
     Active Substance: ONDANSETRON HYDROCHLORIDE
  2. ENOXAPARIN [Concomitant]
     Active Substance: ENOXAPARIN
     Dosage: DAILY DOSE: 40 MG MILLGRAM(S) EVERY DAYS
  3. DUODART [Concomitant]
     Active Substance: DUTASTERIDE\TAMSULOSIN
     Dosage: DAILY DOSE: 1 DF DOSAGE FORM EVERY DAYS, 0.5/0.4 MG
  4. VOMEX [Concomitant]
     Active Substance: DIMENHYDRINATE
  5. LANTAREL [Suspect]
     Active Substance: METHOTREXATE SODIUM
     Indication: RHEUMATOID ARTHRITIS
     Dosage: 10 MG EVERY DAY
     Route: 048
     Dates: start: 20190831, end: 20190906
  6. PREDNISOLON [PREDNISOLONE] [Concomitant]
     Active Substance: PREDNISOLONE
     Dosage: DAILY DOSE: 5 MG MILLGRAM(S) EVERY DAYS
  7. FURADANTIN [Concomitant]
     Active Substance: NITROFURANTOIN
     Dosage: DAILY DOSE: 100 MG MILLGRAM(S) EVERY DAYS
  8. PIRITRAMIDE [Concomitant]
     Active Substance: PIRITRAMIDE
  9. OXYGESIC [Concomitant]
     Active Substance: OXYCODONE
  10. METAMIZOLE [Interacting]
     Active Substance: METAMIZOLE
     Indication: PAIN
     Dosage: 160 DROPS) EVERY DAY, 4 SEPARATED DOSES
     Route: 048
     Dates: start: 20190902, end: 20190906
  11. MOVICOL [Concomitant]
     Active Substance: POLYETHYLENE GLYCOL 3350\POTASSIUM CHLORIDE\SODIUM BICARBONATE\SODIUM CHLORIDE

REACTIONS (8)
  - Accidental overdose [Fatal]
  - Sepsis [Fatal]
  - Agranulocytosis [Fatal]
  - Pneumonia [Fatal]
  - Multiple organ dysfunction syndrome [Fatal]
  - Product prescribing error [Fatal]
  - Labelled drug-drug interaction medication error [Fatal]
  - Pancytopenia [Fatal]

NARRATIVE: CASE EVENT DATE: 20190907
